FAERS Safety Report 14892686 (Version 1)
Quarter: 2018Q2

REPORT INFORMATION
  Report Type: Spontaneous
  Country: US (occurrence: US)
  Receive Date: 20180514
  Receipt Date: 20180514
  Transmission Date: 20180711
  Serious: Yes (Other)
  Sender: FDA-Public Use
  Company Number: US-GLAXOSMITHKLINE-US2018GSK084055

PATIENT
  Age: 48 Year
  Sex: Male

DRUGS (8)
  1. BASILIXIMAB [Suspect]
     Active Substance: BASILIXIMAB
  2. RUXOLITINIB [Suspect]
     Active Substance: RUXOLITINIB
  3. PREDNISONE. [Suspect]
     Active Substance: PREDNISONE
  4. PENTAMIDINE [Suspect]
     Active Substance: PENTAMIDINE
  5. ATOVAQUONE. [Suspect]
     Active Substance: ATOVAQUONE
  6. TACROLIMUS. [Suspect]
     Active Substance: TACROLIMUS
  7. FLUCONAZOLE. [Suspect]
     Active Substance: FLUCONAZOLE
  8. ACYCLOVIR. [Suspect]
     Active Substance: ACYCLOVIR

REACTIONS (8)
  - Pancreatitis acute [Unknown]
  - Chest X-ray abnormal [Unknown]
  - Chest pain [Unknown]
  - Respiratory failure [Unknown]
  - Nocardiosis [Unknown]
  - Treatment noncompliance [Unknown]
  - Cough [Unknown]
  - Pneumocystis jirovecii pneumonia [Unknown]
